FAERS Safety Report 9834814 (Version 1)
Quarter: 2014Q1

REPORT INFORMATION
  Report Type: Spontaneous
  Country: US (occurrence: US)
  Receive Date: 20140122
  Receipt Date: 20140122
  Transmission Date: 20141002
  Serious: No
  Sender: FDA-Public Use
  Company Number: US-BAUSCH-BL-2013-002526

PATIENT
  Age: 81 Year
  Sex: Female
  Weight: 52.21 kg

DRUGS (8)
  1. ALAWAY (KETOTIFEN FUMARATE OPHTHALMIC SOLUTION) [Suspect]
     Indication: EYE PRURITUS
     Dosage: 1 DROP IN EACH EYE; TWICE DAILY; OPHTHALMIC
     Route: 047
     Dates: start: 20130412, end: 20130426
  2. CALCIUM [Concomitant]
  3. ERGOCALCIFEROL [Concomitant]
  4. VITAMINS NOS [Concomitant]
  5. FISH OIL [Concomitant]
  6. GABAPENTIN [Concomitant]
     Indication: NEURALGIA
  7. LISINOPRIL [Concomitant]
     Indication: HYPERTENSION
  8. TRAMADOL [Concomitant]
     Indication: NEURALGIA

REACTIONS (2)
  - Vision blurred [Recovered/Resolved]
  - Visual impairment [Recovered/Resolved]
